FAERS Safety Report 9721429 (Version 1)
Quarter: 2013Q4

REPORT INFORMATION
  Report Type: Spontaneous
  Country: ES (occurrence: ES)
  Receive Date: 20131129
  Receipt Date: 20131129
  Transmission Date: 20140711
  Serious: Yes (Life-Threatening, Hospitalization)
  Sender: FDA-Public Use
  Company Number: ES-009507513-1311ESP012479

PATIENT
  Age: 91 Year
  Sex: Male

DRUGS (1)
  1. INVANZ [Suspect]
     Indication: URINARY TRACT INFECTION
     Route: 065
     Dates: start: 20131031, end: 20131108

REACTIONS (1)
  - Dystonia [Recovered/Resolved]
